FAERS Safety Report 13463612 (Version 1)
Quarter: 2017Q2

REPORT INFORMATION
  Report Type: Spontaneous
  Country: US (occurrence: US)
  Receive Date: 20170420
  Receipt Date: 20170420
  Transmission Date: 20170830
  Serious: No
  Sender: FDA-Public Use
  Company Number: US-009507513-1703USA013937

PATIENT
  Age: 28 Year
  Sex: Female
  Weight: 72.56 kg

DRUGS (1)
  1. NUVARING [Suspect]
     Active Substance: ETHINYL ESTRADIOL\ETONOGESTREL
     Indication: CONTRACEPTION
     Dosage: 3 WEEKS IN, 1 WEEK OUT
     Route: 067
     Dates: start: 201609

REACTIONS (7)
  - Abnormal withdrawal bleeding [Unknown]
  - Breast pain [Unknown]
  - Device difficult to use [Unknown]
  - Migraine [Unknown]
  - Libido decreased [Unknown]
  - Weight increased [Unknown]
  - Breast tenderness [Unknown]

NARRATIVE: CASE EVENT DATE: 201703
